FAERS Safety Report 10053048 (Version 1)
Quarter: 2014Q2

REPORT INFORMATION
  Report Type: Spontaneous
  Country: CN (occurrence: CN)
  Receive Date: 20140402
  Receipt Date: 20140402
  Transmission Date: 20141212
  Serious: Yes (Other)
  Sender: FDA-Public Use
  Company Number: CN-PFIZER INC-2014087695

PATIENT
  Age: 73 Year
  Sex: Male

DRUGS (1)
  1. SOLU-MEDROL [Suspect]
     Dosage: 500 MG, ONCE
     Route: 041
     Dates: start: 20140320, end: 20140320

REACTIONS (1)
  - Epilepsy [Unknown]
